FAERS Safety Report 13168056 (Version 2)
Quarter: 2017Q1

REPORT INFORMATION
  Report Type: Spontaneous
  Country: US (occurrence: US)
  Receive Date: 20170131
  Receipt Date: 20170214
  Transmission Date: 20170428
  Serious: Yes (Other)
  Sender: FDA-Public Use
  Company Number: US-JNJFOC-20170119203

PATIENT
  Age: 47 Year
  Sex: Female
  Weight: 49.9 kg

DRUGS (4)
  1. BENADRYL ALLERGY [Suspect]
     Active Substance: DIPHENHYDRAMINE HYDROCHLORIDE
     Indication: DERMATITIS CONTACT
     Dosage: 1-2 TABLETS (FIRST DOSE:1 TABLET, SECOND DOSE: 2 TABLETS), TWO TIMES DAILY
     Route: 048
     Dates: start: 20170117, end: 20170118
  2. BENADRYL ALLERGY [Suspect]
     Active Substance: DIPHENHYDRAMINE HYDROCHLORIDE
     Indication: EYE PRURITUS
     Dosage: 1-2 TABLETS (FIRST DOSE:1 TABLET, SECOND DOSE: 2 TABLETS), TWO TIMES DAILY
     Route: 048
     Dates: start: 20170117, end: 20170118
  3. BENADRYL ALLERGY [Suspect]
     Active Substance: DIPHENHYDRAMINE HYDROCHLORIDE
     Indication: THROAT IRRITATION
     Dosage: 1-2 TABLETS (FIRST DOSE:1 TABLET, SECOND DOSE: 2 TABLETS), TWO TIMES DAILY
     Route: 048
     Dates: start: 20170117, end: 20170118
  4. BENADRYL ALLERGY [Suspect]
     Active Substance: DIPHENHYDRAMINE HYDROCHLORIDE
     Indication: DRY EYE
     Dosage: 1-2 TABLETS (FIRST DOSE:1 TABLET, SECOND DOSE: 2 TABLETS), TWO TIMES DAILY
     Route: 048
     Dates: start: 20170117, end: 20170118

REACTIONS (13)
  - Panic attack [Recovered/Resolved]
  - Suicidal ideation [Recovered/Resolved]
  - Scratch [Recovered/Resolved]
  - Delusion [Recovered/Resolved]
  - Mania [Recovered/Resolved]
  - Mental impairment [Recovered/Resolved]
  - Product label issue [Unknown]
  - Product use issue [Recovered/Resolved]
  - Pruritus [Recovered/Resolved]
  - Violence-related symptom [Recovered/Resolved]
  - Hallucination, auditory [Recovered/Resolved]
  - Lip swelling [Recovered/Resolved]
  - Rash [Not Recovered/Not Resolved]

NARRATIVE: CASE EVENT DATE: 20170117
